FAERS Safety Report 23409182 (Version 1)
Quarter: 2024Q1

REPORT INFORMATION
  Report Type: Spontaneous
  Country: FR (occurrence: FR)
  Receive Date: 20240117
  Receipt Date: 20240117
  Transmission Date: 20240409
  Serious: Yes (Other)
  Sender: FDA-Public Use
  Company Number: None

PATIENT
  Age: 46 Year
  Sex: Male
  Weight: 79 kg

DRUGS (3)
  1. VERAPAMIL HYDROCHLORIDE [Suspect]
     Active Substance: VERAPAMIL HYDROCHLORIDE
     Indication: Angiocardiogram
     Dosage: UNK
     Route: 048
     Dates: start: 20230727, end: 20230727
  2. HEPARIN [Suspect]
     Active Substance: HEPARIN SODIUM
     Indication: Angiocardiogram
     Dosage: 5000 INTERNATIONAL UNIT
     Route: 042
     Dates: start: 20230727
  3. IOMERON [Suspect]
     Active Substance: IOMEPROL
     Indication: Angiocardiogram
     Dosage: UNK
     Route: 042
     Dates: start: 20230727, end: 20230727

REACTIONS (2)
  - Erythema [Recovered/Resolved]
  - Hypotension [Recovered/Resolved]

NARRATIVE: CASE EVENT DATE: 20230727
